FAERS Safety Report 20058320 (Version 3)
Quarter: 2021Q4

REPORT INFORMATION
  Report Type: Report from Study
  Country: CA (occurrence: CA)
  Receive Date: 20211111
  Receipt Date: 20211210
  Transmission Date: 20220304
  Serious: Yes (Other)
  Sender: FDA-Public Use
  Company Number: CA-JNJFOC-20211107228

PATIENT
  Age: 55 Year
  Sex: Male

DRUGS (1)
  1. REMICADE [Suspect]
     Active Substance: INFLIXIMAB
     Indication: Colitis ulcerative
     Route: 042

REACTIONS (3)
  - Bell^s palsy [Unknown]
  - Herpes zoster [Unknown]
  - Ear infection [Unknown]

NARRATIVE: CASE EVENT DATE: 20211102
